FAERS Safety Report 23835666 (Version 1)
Quarter: 2024Q2

REPORT INFORMATION
  Report Type: Spontaneous
  Country: CA (occurrence: CA)
  Receive Date: 20240509
  Receipt Date: 20240509
  Transmission Date: 20240717
  Serious: Yes (Other)
  Sender: FDA-Public Use
  Company Number: CA-PFIZER INC-202400100335

PATIENT

DRUGS (10)
  1. INFLECTRA [Suspect]
     Active Substance: INFLIXIMAB-DYYB
     Indication: Crohn^s disease
     Dosage: 600 MG , Q 0 , 2 AND 6 WEEKS, THEN EVERY 8 WEEKS
     Route: 042
     Dates: start: 20210225
  2. INFLECTRA [Suspect]
     Active Substance: INFLIXIMAB-DYYB
     Dosage: 600 MG , Q 0 , 2 AND 6 WEEKS, THEN EVERY 8 WEEKS
     Route: 040
     Dates: start: 20240315
  3. INFLECTRA [Suspect]
     Active Substance: INFLIXIMAB-DYYB
     Dosage: 600 MG , Q 0 , 2 AND 6 WEEKS, THEN EVERY 8 WEEKS
     Route: 040
     Dates: start: 20240402
  4. INFLECTRA [Suspect]
     Active Substance: INFLIXIMAB-DYYB
     Dosage: 600 MG , Q 0,2 AND 6 WEEKS, THEN EVERY 8 WEEKS (600MG AFTER 4 WEEKS AND 1 DAY (WEEK 6 RE INDUCTION)
     Route: 040
     Dates: start: 20240501
  5. CALCIUM [Concomitant]
     Active Substance: CALCIUM
     Dosage: 1 DF , DOSAGE INFORMATION IS UNKNOWN
     Route: 065
  6. CIPROFLOXACIN [Concomitant]
     Active Substance: CIPROFLOXACIN
     Dosage: 1 DF , DOSAGE INFORMATION IS UNKNOWN
     Route: 065
  7. METRONIDAZOLE [Concomitant]
     Active Substance: METRONIDAZOLE
     Dosage: 1 DF , DOSAGE INFORMATION IS UNKNOWN
     Route: 065
  8. PREDNISONE [Concomitant]
     Active Substance: PREDNISONE
     Dosage: 1 DF , DOSAGE INFORMATION IS UNKNOWN
     Route: 065
  9. SEPTRA [Concomitant]
     Active Substance: SULFAMETHOXAZOLE\TRIMETHOPRIM
     Dosage: 1 DF , DOSAGE INFORMATION IS UNKNOWN
     Route: 065
  10. CHOLECALCIFEROL [Concomitant]
     Active Substance: CHOLECALCIFEROL
     Dosage: 1 DF , DOSAGE INFORMATION IS UNKNOWN
     Route: 065

REACTIONS (1)
  - Fistula [Recovered/Resolved]

NARRATIVE: CASE EVENT DATE: 20240401
